FAERS Safety Report 20999468 (Version 4)
Quarter: 2022Q3

REPORT INFORMATION
  Report Type: Spontaneous
  Country: US (occurrence: US)
  Receive Date: 20220623
  Receipt Date: 20220825
  Transmission Date: 20221027
  Serious: No
  Sender: FDA-Public Use
  Company Number: US-PFIZER INC-202200877395

PATIENT
  Age: 86 Year
  Sex: Female
  Weight: 65.32 kg

DRUGS (1)
  1. PAXLOVID [Suspect]
     Active Substance: NIRMATRELVIR\RITONAVIR
     Indication: COVID-19 treatment
     Dosage: TWO WHITE TABLETS
     Dates: start: 20220622

REACTIONS (4)
  - Malaise [Unknown]
  - Overdose [Unknown]
  - Incorrect dosage administered [Unknown]
  - Product dispensing error [Unknown]

NARRATIVE: CASE EVENT DATE: 20220622
